FAERS Safety Report 9656480 (Version 1)
Quarter: 2013Q4

REPORT INFORMATION
  Report Type: Spontaneous
  Country: US (occurrence: None)
  Receive Date: 20131029
  Receipt Date: 20131029
  Transmission Date: 20140711
  Serious: Yes (Death)
  Sender: FDA-Public Use
  Company Number: None

PATIENT
  Age: 70 Year
  Sex: Male
  Weight: 90 kg

DRUGS (12)
  1. TOCILIZUMAB [Suspect]
     Indication: RHEUMATOID ARTHRITIS
  2. DUONEB [Concomitant]
  3. AMLODIPINE [Concomitant]
  4. ASPIRIN [Concomitant]
  5. CLEARALUNG [Concomitant]
  6. FOLIC ACID [Concomitant]
  7. GUAIFENESIN [Concomitant]
  8. DECADRON [Concomitant]
  9. DECADRON [Concomitant]
  10. MELOXICAM [Concomitant]
  11. HYDROCODONE/APAP [Concomitant]
  12. OXYGEN [Concomitant]

REACTIONS (8)
  - Pneumonia [None]
  - Renal failure acute [None]
  - Lactic acidosis [None]
  - Haemodynamic instability [None]
  - Bacterial test positive [None]
  - Tachycardia [None]
  - Atrial fibrillation [None]
  - Livedo reticularis [None]
